FAERS Safety Report 22625250 (Version 1)
Quarter: 2023Q2

REPORT INFORMATION
  Report Type: Spontaneous
  Country: US (occurrence: None)
  Receive Date: 20230620
  Receipt Date: 20230620
  Transmission Date: 20230722
  Serious: Yes (Life-Threatening, Hospitalization)
  Sender: FDA-Public Use
  Company Number: None

PATIENT
  Age: 67 Year
  Sex: Male
  Weight: 74.0 kg

DRUGS (1)
  1. YESCARTA [Suspect]
     Active Substance: AXICABTAGENE CILOLEUCEL
     Indication: Diffuse large B-cell lymphoma recurrent
     Dosage: OTHER FREQUENCY : ONCE;?
     Route: 041
     Dates: start: 20230412, end: 20230412

REACTIONS (3)
  - Immune effector cell-associated neurotoxicity syndrome [None]
  - Immune effector cell-associated neurotoxicity syndrome [None]
  - Cerebellar infarction [None]

NARRATIVE: CASE EVENT DATE: 20230418
